FAERS Safety Report 7969947-3 (Version None)
Quarter: 2011Q4

REPORT INFORMATION
  Report Type: 
  Country: None (occurrence: None)
  Receive Date: 20111212
  Receipt Date: 20111130
  Transmission Date: 20120403
  Serious: Yes (Hospitalization)
  Sender: FDA-Public Use
  Company Number: US-BRISTOL-MYERS SQUIBB COMPANY-16062390

PATIENT
  Age: 72 Year
  Sex: Female
  Weight: 81 kg

DRUGS (4)
  1. RHUMAB-VEGF [Suspect]
     Indication: ENDOMETRIAL CANCER
     Dosage: NO OF COURSES:3
     Route: 042
     Dates: start: 20110624, end: 20110816
  2. CARBOPLATIN [Suspect]
     Indication: ENDOMETRIAL CANCER
     Dosage: NO OF COURSES:3
     Route: 042
     Dates: start: 20110624, end: 20110816
  3. COUMADIN [Concomitant]
  4. IXEMPRA KIT [Suspect]
     Indication: ENDOMETRIAL CANCER
     Dosage: NO OF COURSES:3
     Route: 042
     Dates: start: 20110624, end: 20110816

REACTIONS (11)
  - ANAEMIA [None]
  - HYPONATRAEMIA [None]
  - SOFT TISSUE NECROSIS [None]
  - HYPOCALCAEMIA [None]
  - HYPOPHOSPHATAEMIA [None]
  - NEUTROPHIL COUNT DECREASED [None]
  - HYPOMAGNESAEMIA [None]
  - INTERNATIONAL NORMALISED RATIO INCREASED [None]
  - HYPOKALAEMIA [None]
  - WHITE BLOOD CELL COUNT DECREASED [None]
  - HYPOALBUMINAEMIA [None]
